FAERS Safety Report 26218656 (Version 1)
Quarter: 2025Q4

REPORT INFORMATION
  Report Type: Spontaneous
  Country: US (occurrence: US)
  Receive Date: 20251231
  Receipt Date: 20251231
  Transmission Date: 20260118
  Serious: No
  Sender: PURDUE
  Company Number: US-PURDUE PHARMA-USA-2025-0323474

PATIENT
  Age: 44 Year
  Sex: Male

DRUGS (1)
  1. OXYCODONE HYDROCHLORIDE [Suspect]
     Active Substance: OXYCODONE HYDROCHLORIDE
     Indication: Product used for unknown indication
     Dosage: UNK
     Route: 065

REACTIONS (3)
  - Sexual abuse [Unknown]
  - Drug diversion [Unknown]
  - Prescription drug used without a prescription [Unknown]

NARRATIVE: CASE EVENT DATE: 20251219
